FAERS Safety Report 9915467 (Version 2)
Quarter: 2014Q1

REPORT INFORMATION
  Report Type: Spontaneous
  Country: DE (occurrence: DE)
  Receive Date: 20140221
  Receipt Date: 20140320
  Transmission Date: 20141002
  Serious: Yes (Death, Other)
  Sender: FDA-Public Use
  Company Number: DE-ROCHE-1353402

PATIENT
  Age: 71 Year
  Sex: Female
  Weight: 87 kg

DRUGS (5)
  1. AVASTIN [Suspect]
     Indication: BREAST CANCER METASTATIC
     Route: 015
     Dates: start: 20131121, end: 20131121
  2. NAB-PACLITAXEL [Suspect]
     Indication: BREAST CANCER METASTATIC
     Route: 042
     Dates: start: 20131121, end: 20131121
  3. XGEVA [Suspect]
     Indication: METASTASES TO BONE
     Route: 065
  4. KEVATRIL [Concomitant]
     Indication: PROPHYLAXIS OF NAUSEA AND VOMITING
     Route: 065
     Dates: start: 20131121, end: 20131121
  5. DEXAMETHASONE [Concomitant]
     Indication: PROPHYLAXIS OF NAUSEA AND VOMITING
     Route: 042
     Dates: start: 20131121, end: 20131121

REACTIONS (5)
  - Sepsis [Fatal]
  - Coma hepatic [Fatal]
  - Pruritus [Fatal]
  - Skin necrosis [Fatal]
  - Impaired healing [Unknown]
